FAERS Safety Report 17585532 (Version 6)
Quarter: 2020Q3

REPORT INFORMATION
  Report Type: Spontaneous
  Country: US (occurrence: US)
  Receive Date: 20200326
  Receipt Date: 20200722
  Transmission Date: 20201102
  Serious: Yes (Death, Hospitalization, Other)
  Sender: FDA-Public Use
  Company Number: US-UNITED THERAPEUTICS-UNT-2020-004583

PATIENT
  Age: 33 Year
  Sex: Female
  Weight: 59.86 kg

DRUGS (4)
  1. REMODULIN [Suspect]
     Active Substance: TREPROSTINIL
     Indication: PULMONARY ARTERIAL HYPERTENSION
     Dosage: UNK, CONTINUING
     Route: 058
     Dates: start: 20190628
  2. REMODULIN [Suspect]
     Active Substance: TREPROSTINIL
     Dosage: 0.010 ?G/KG, CONTINUING
     Route: 058
  3. REMODULIN [Suspect]
     Active Substance: TREPROSTINIL
     Indication: PULMONARY ARTERIAL HYPERTENSION
     Dosage: UNK, CONTINUING
     Route: 041
     Dates: start: 20200319
  4. ADEMPAS [Concomitant]
     Active Substance: RIOCIGUAT
     Indication: PRODUCT USED FOR UNKNOWN INDICATION
     Dosage: UNK
     Route: 065

REACTIONS (16)
  - Cholelithiasis [Unknown]
  - Portal hypertension [Unknown]
  - Pulmonary arterial hypertension [Fatal]
  - Pain [Not Recovered/Not Resolved]
  - Tricuspid valve incompetence [Unknown]
  - Syncope [Unknown]
  - Colitis ulcerative [Fatal]
  - Mental status changes [Unknown]
  - Thrombocytopenia [Unknown]
  - Staphylococcal bacteraemia [Unknown]
  - Hiatus hernia [Unknown]
  - Anaemia [Unknown]
  - International normalised ratio increased [Unknown]
  - Hepatic cirrhosis [Fatal]
  - Cholangitis sclerosing [Fatal]
  - Gastritis [Unknown]

NARRATIVE: CASE EVENT DATE: 20200317
